FAERS Safety Report 24798916 (Version 2)
Quarter: 2025Q1

REPORT INFORMATION
  Report Type: Spontaneous
  Country: IT (occurrence: IT)
  Receive Date: 20250102
  Receipt Date: 20250115
  Transmission Date: 20250408
  Serious: Yes (Other)
  Sender: TEVA
  Company Number: IT-TEVA-VS-3280721

PATIENT
  Age: 13 Year
  Sex: Male

DRUGS (3)
  1. SORAFENIB [Suspect]
     Active Substance: SORAFENIB
     Indication: Acute myeloid leukaemia
     Dosage: CYCLICAL
     Route: 048
     Dates: start: 2014
  2. CYTARABINE [Suspect]
     Active Substance: CYTARABINE
     Indication: Acute myeloid leukaemia
     Dosage: CYCLICAL; IN A TOTAL 8?DAYS/CYCLE
     Route: 042
     Dates: start: 2014
  3. PEGASPARGASE [Suspect]
     Active Substance: PEGASPARGASE
     Indication: Acute myeloid leukaemia
     Dosage: CYCLICAL; FOR 4?ADMINISTRATIONS
     Route: 042
     Dates: start: 2014

REACTIONS (2)
  - Graft versus host disease in skin [Unknown]
  - Off label use [Unknown]

NARRATIVE: CASE EVENT DATE: 20140101
